FAERS Safety Report 16042081 (Version 1)
Quarter: 2019Q1

REPORT INFORMATION
  Report Type: Spontaneous
  Country: US (occurrence: US)
  Receive Date: 20190207
  Receipt Date: 20190207
  Transmission Date: 20190418
  Serious: Yes (Hospitalization)
  Sender: FDA-Public Use
  Company Number: None

PATIENT
  Age: 79 Year
  Sex: Female

DRUGS (13)
  1. LETAIRIS [Suspect]
     Active Substance: AMBRISENTAN
     Indication: PULMONARY ARTERIAL HYPERTENSION
     Route: 048
     Dates: start: 200811
  2. LOSARTAN. [Concomitant]
     Active Substance: LOSARTAN
  3. FERROUS SULFATE. [Concomitant]
     Active Substance: FERROUS SULFATE
  4. ROFROSH P.M. [Concomitant]
  5. TYVASO [Concomitant]
     Active Substance: TREPROSTINIL
  6. DILTIAZEM. [Concomitant]
     Active Substance: DILTIAZEM
  7. AMBRISENTEN [Concomitant]
  8. VITAMIN D3 [Concomitant]
     Active Substance: CHOLECALCIFEROL
  9. FUROSEMIDE. [Concomitant]
     Active Substance: FUROSEMIDE
  10. OPHT OINT [Concomitant]
     Route: 048
  11. OMPREZOLE [Concomitant]
     Active Substance: OMEPRAZOLE
  12. SILDENAFIL. [Concomitant]
     Active Substance: SILDENAFIL
  13. FLONASE [Concomitant]
     Active Substance: FLUTICASONE PROPIONATE

REACTIONS (2)
  - Rectal haemorrhage [None]
  - Anaemia [None]

NARRATIVE: CASE EVENT DATE: 20190101
